FAERS Safety Report 14990219 (Version 2)
Quarter: 2019Q2

REPORT INFORMATION
  Report Type: Spontaneous
  Country: US (occurrence: US)
  Receive Date: 20180608
  Receipt Date: 20190619
  Transmission Date: 20190711
  Serious: No
  Sender: FDA-Public Use
  Company Number: US-ROCHE-2018490

PATIENT
  Age: 68 Year
  Sex: Male

DRUGS (2)
  1. ACTEMRA [Suspect]
     Active Substance: TOCILIZUMAB
     Indication: RHEUMATOID ARTHRITIS
     Dosage: STRENGTH: 162 MG/0.9 ML
     Route: 058
     Dates: start: 20170713
  2. PREDNISONE. [Concomitant]
     Active Substance: PREDNISONE

REACTIONS (7)
  - Myalgia [Unknown]
  - Headache [Unknown]
  - Fatigue [Unknown]
  - Myalgia [Unknown]
  - Rhinorrhoea [Unknown]
  - Lacrimation increased [Unknown]
  - Eye swelling [Unknown]

NARRATIVE: CASE EVENT DATE: 20171030
